FAERS Safety Report 10242711 (Version 2)
Quarter: 2014Q2

REPORT INFORMATION
  Report Type: Spontaneous
  Country: US (occurrence: US)
  Receive Date: 20140617
  Receipt Date: 20140617
  Transmission Date: 20141212
  Serious: Yes (Hospitalization, Other)
  Sender: FDA-Public Use
  Company Number: US-RB-067924-14

PATIENT
  Age: 49 Year
  Sex: Female

DRUGS (6)
  1. SUBOXONE FILM [Suspect]
     Indication: PAIN
     Dosage: SUBOXONE FILM
     Route: 060
     Dates: start: 2010, end: 2011
  2. SUBOXONE FILM [Suspect]
     Dosage: SUBOXONE FILM; CUTTING IN HALF, 3 DAYS IN WEEK TOOK 1/2 STRIP TWICE A DAY, REST OF WEEK 8 MG DAILY
     Route: 060
     Dates: start: 2011, end: 2013
  3. SUBOXONE FILM [Suspect]
     Dosage: SUBOXONE FILM; CUTTING IN HALF, SELF TAPERING OFF AND ON, TAKING 1/2 STRIP DAILY OR STOPPING
     Route: 060
     Dates: start: 201301
  4. SUBOXONE TABLET [Suspect]
     Indication: PAIN
     Route: 060
     Dates: start: 2008, end: 2010
  5. LISINOPRIL [Concomitant]
     Indication: HYPERTENSION
     Dosage: FURTHER DOSING DETAILS UNKNOWN
     Route: 048
     Dates: start: 2008
  6. IRON SUPPLEMENT [Concomitant]
     Indication: IRON DEFICIENCY
     Dosage: DOSING DETAILS UNKNOWN
     Route: 048
     Dates: start: 2012

REACTIONS (23)
  - Off label use [Not Recovered/Not Resolved]
  - Insomnia [Not Recovered/Not Resolved]
  - Sleep apnoea syndrome [Not Recovered/Not Resolved]
  - Wrong technique in drug usage process [Not Recovered/Not Resolved]
  - Vitamin B complex deficiency [Not Recovered/Not Resolved]
  - Vitamin D deficiency [Not Recovered/Not Resolved]
  - Constipation [Not Recovered/Not Resolved]
  - Pain in extremity [Not Recovered/Not Resolved]
  - Intentional underdose [Not Recovered/Not Resolved]
  - Drug withdrawal syndrome [Not Recovered/Not Resolved]
  - Spinal pain [Not Recovered/Not Resolved]
  - Condition aggravated [Not Recovered/Not Resolved]
  - Fatigue [Not Recovered/Not Resolved]
  - Nausea [Not Recovered/Not Resolved]
  - Sinus congestion [Recovered/Resolved]
  - Nephrolithiasis [Recovered/Resolved]
  - Cystitis [Recovered/Resolved]
  - Haematuria [Unknown]
  - Dysuria [Unknown]
  - Oedema peripheral [Recovered/Resolved]
  - Vomiting [Recovered/Resolved]
  - Chest pain [Recovered/Resolved]
  - Cardiac failure congestive [Not Recovered/Not Resolved]
